FAERS Safety Report 6553861-4 (Version None)
Quarter: 2010Q1

REPORT INFORMATION
  Report Type: 
  Country: None (occurrence: None)
  Receive Date: 20100127
  Receipt Date: 20100120
  Transmission Date: 20100710
  Serious: Yes (Other)
  Sender: FDA-Public Use
  Company Number: BR-ROCHE-673060

PATIENT
  Age: 32 Year
  Sex: Female

DRUGS (4)
  1. HERCEPTIN [Suspect]
     Indication: BREAST CANCER
     Route: 065
     Dates: end: 20091020
  2. DOXORUBICIN HCL [Concomitant]
     Indication: BREAST CANCER
     Dates: start: 20091020
  3. CYCLOPHOSPHAMIDE [Concomitant]
     Indication: BREAST CANCER
     Dates: start: 20091020
  4. PACLITAXEL [Concomitant]
     Indication: BREAST CANCER
     Dates: start: 20091020

REACTIONS (3)
  - CELLULITIS [None]
  - FISTULA [None]
  - SECRETION DISCHARGE [None]
